FAERS Safety Report 8220668-1 (Version None)
Quarter: 2012Q1

REPORT INFORMATION
  Report Type: 
  Country: None (occurrence: None)
  Receive Date: 20120320
  Receipt Date: 20120308
  Transmission Date: 20120608
  Serious: Yes (Death)
  Sender: FDA-Public Use
  Company Number: FR-ELI_LILLY_AND_COMPANY-FR201202007171

PATIENT
  Age: 53 Year
  Sex: Male

DRUGS (2)
  1. OLANZAPINE [Suspect]
     Indication: SCHIZOPHRENIA
     Dosage: 300 MG, EVERY 2 WEEKS
     Route: 030
  2. VALDOXAN [Concomitant]
     Dosage: UNK, UNKNOWN
     Dates: start: 20120214

REACTIONS (2)
  - COMPLETED SUICIDE [None]
  - DEPRESSION [None]
